FAERS Safety Report 5626110-9 (Version None)
Quarter: 2008Q1

REPORT INFORMATION
  Report Type: 
  Country: None (occurrence: None)
  Receive Date: 20080213
  Receipt Date: 20080213
  Transmission Date: 20080703
  Serious: Yes (Death)
  Sender: FDA-Public Use
  Company Number: None

PATIENT
  Sex: Female
  Weight: 86.1834 kg

DRUGS (1)
  1. SULAR [Suspect]
     Indication: HYPERTENSION
     Dosage: 20MG DAILY ORAL
     Route: 048
     Dates: start: 20071001, end: 20071201

REACTIONS (3)
  - DRUG ADMINISTRATION ERROR [None]
  - DRUG INTERACTION [None]
  - MYOCARDIAL INFARCTION [None]
